FAERS Safety Report 24388900 (Version 2)
Quarter: 2024Q4

REPORT INFORMATION
  Report Type: Spontaneous
  Country: JP (occurrence: JP)
  Receive Date: 20241002
  Receipt Date: 20241030
  Transmission Date: 20250114
  Serious: Yes (Other)
  Sender: PFIZER
  Company Number: JP-PFIZER INC-202400267361

PATIENT
  Age: 12 Day
  Sex: Male

DRUGS (1)
  1. SIROLIMUS [Suspect]
     Active Substance: SIROLIMUS
     Dosage: UNK

REACTIONS (3)
  - Neonatal infection [Recovered/Resolved]
  - Product administered to patient of inappropriate age [Unknown]
  - Wrong technique in product usage process [Unknown]
